FAERS Safety Report 5737895-5 (Version None)
Quarter: 2008Q2

REPORT INFORMATION
  Report Type: 
  Country: None (occurrence: None)
  Receive Date: 20080514
  Receipt Date: 20080507
  Transmission Date: 20081010
  Serious: Yes (Hospitalization)
  Sender: FDA-Public Use
  Company Number: IN-AVENTIS-200814160GDDC

PATIENT
  Age: 51 Year
  Sex: Female
  Weight: 61 kg

DRUGS (9)
  1. AMARYL [Suspect]
     Route: 048
     Dates: start: 20070801, end: 20070921
  2. AMARYL [Suspect]
     Route: 048
     Dates: start: 20071001, end: 20080205
  3. LANTUS [Suspect]
     Route: 058
     Dates: start: 20070801, end: 20070921
  4. LANTUS [Suspect]
     Route: 058
     Dates: start: 20071001, end: 20080205
  5. METFORMIN HCL [Suspect]
     Route: 048
     Dates: start: 20070801, end: 20070921
  6. METFORMIN HCL [Suspect]
     Route: 048
     Dates: start: 20071001, end: 20080205
  7. ENALAPRIL MALEATE [Concomitant]
     Dates: start: 20070705
  8. INSULIN MIXTARD                    /00030504/ [Concomitant]
     Dates: start: 20070921, end: 20070930
  9. RANTAC [Concomitant]
     Dates: start: 20070921, end: 20070929

REACTIONS (3)
  - HYPOGLYCAEMIA [None]
  - LOSS OF CONSCIOUSNESS [None]
  - SYNCOPE [None]
